FAERS Safety Report 5878572-X (Version None)
Quarter: 2008Q3

REPORT INFORMATION
  Report Type: 
  Country: None (occurrence: None)
  Receive Date: 20080909
  Receipt Date: 20080826
  Transmission Date: 20090109
  Serious: Yes (Death)
  Sender: FDA-Public Use
  Company Number: 2008002134

PATIENT
  Age: 38 Year
  Sex: Female

DRUGS (1)
  1. TARCEVA [Suspect]
     Indication: LUNG ADENOCARCINOMA
     Dosage: (150 MG, QD), ORAL
     Route: 048
     Dates: start: 20071101

REACTIONS (4)
  - DIARRHOEA [None]
  - DRY MOUTH [None]
  - DRY SKIN [None]
  - VULVOVAGINAL DRYNESS [None]
